FAERS Safety Report 16288605 (Version 2)
Quarter: 2019Q3

REPORT INFORMATION
  Report Type: Spontaneous
  Country: US (occurrence: US)
  Receive Date: 20190509
  Receipt Date: 20190701
  Transmission Date: 20191004
  Serious: No
  Sender: FDA-Public Use
  Company Number: US-BIOGEN-2019BI00735258

PATIENT
  Sex: Female

DRUGS (2)
  1. AVONEX [Suspect]
     Active Substance: INTERFERON BETA-1A
     Indication: MULTIPLE SCLEROSIS
     Dosage: 0.33 WEEKLY
     Route: 030
  2. AVONEX [Suspect]
     Active Substance: INTERFERON BETA-1A
     Route: 065
     Dates: start: 20030523

REACTIONS (4)
  - Injection site bruising [Not Recovered/Not Resolved]
  - Lack of injection site rotation [Not Recovered/Not Resolved]
  - Injection site pain [Not Recovered/Not Resolved]
  - Device difficult to use [Not Recovered/Not Resolved]
